FAERS Safety Report 6550009-7 (Version None)
Quarter: 2010Q1

REPORT INFORMATION
  Report Type: 
  Country: None (occurrence: None)
  Receive Date: 20100125
  Receipt Date: 20100118
  Transmission Date: 20100710
  Serious: Yes (Hospitalization)
  Sender: FDA-Public Use
  Company Number: FR-BRISTOL-MYERS SQUIBB COMPANY-14943187

PATIENT
  Age: 74 Year
  Sex: Male

DRUGS (7)
  1. GLUCOPHAGE [Suspect]
     Indication: TYPE 2 DIABETES MELLITUS
  2. CRESTOR [Concomitant]
  3. PLAVIX [Concomitant]
  4. KARDEGIC [Concomitant]
  5. BISOPROLOL FUMARATE [Concomitant]
  6. AMLOR [Concomitant]
  7. NEXIUM [Concomitant]

REACTIONS (5)
  - HYPERKALAEMIA [None]
  - LACTIC ACIDOSIS [None]
  - MYOCARDIAL INFARCTION [None]
  - OVERDOSE [None]
  - RENAL FAILURE ACUTE [None]
